FAERS Safety Report 9038822 (Version 1)
Quarter: 2013Q1

REPORT INFORMATION
  Report Type: Report from Study
  Country: US (occurrence: US)
  Receive Date: 20130129
  Receipt Date: 20130129
  Transmission Date: 20140127
  Serious: No
  Sender: FDA-Public Use
  Company Number: US-ABBOTT-12P-163-0933343-00

PATIENT
  Age: 58 Year
  Sex: Female

DRUGS (7)
  1. HUMIRA 40 MG/0.8 ML PEN [Suspect]
     Indication: RHEUMATOID ARTHRITIS
     Dates: start: 20091116
  2. PREDNISONE [Concomitant]
     Indication: RHEUMATOID ARTHRITIS
     Dosage: 2MG DAILY
  3. METHOTREXATE [Concomitant]
     Indication: RHEUMATOID ARTHRITIS
     Dosage: 15MG WEEKLY
  4. FOLIC ACID [Concomitant]
     Indication: VITAMIN SUPPLEMENTATION
     Dosage: 1MG DAILY
  5. INDERAL [Concomitant]
     Indication: PALPITATIONS
  6. CRESTOR [Concomitant]
     Indication: BLOOD CHOLESTEROL INCREASED
     Dosage: 10MG DAILY
  7. OMEPRAZOLE [Concomitant]
     Indication: DYSPEPSIA
     Dosage: 40MG DAILY

REACTIONS (3)
  - Injection site pain [Recovered/Resolved]
  - Injection site pain [Unknown]
  - Injection site haemorrhage [Unknown]
